FAERS Safety Report 4603039-6 (Version None)
Quarter: 2005Q1

REPORT INFORMATION
  Report Type: 
  Country: None (occurrence: None)
  Receive Date: 20050307
  Receipt Date: 20050223
  Transmission Date: 20050727
  Serious: Yes (Hospitalization)
  Sender: FDA-Public Use
  Company Number: 2005036561

PATIENT
  Age: 64 Year
  Sex: Male
  Weight: 79 kg

DRUGS (4)
  1. LIPITOR [Suspect]
     Indication: ILL-DEFINED DISORDER
     Dosage: 20 MG (20 MG, 1 IN 1 D), ORAL
     Route: 048
     Dates: start: 20040901, end: 20050101
  2. PERINDOPRIL ERBUMINE/INDAPAMIDE HEMIHYDRATE (INDAPAMIDE HEMIHYDRATE, P [Concomitant]
  3. INSULIN [Concomitant]
  4. ANTITHROMBOTIC AGENTS (ANTITHROMBOTIC AGENTS) [Concomitant]

REACTIONS (2)
  - HEPATIC INFECTION [None]
  - PYREXIA [None]
